FAERS Safety Report 15949323 (Version 3)
Quarter: 2025Q3

REPORT INFORMATION
  Report Type: Report from Study
  Country: GB (occurrence: GB)
  Receive Date: 20190212
  Receipt Date: 20250723
  Transmission Date: 20251021
  Serious: Yes (Life-Threatening, Hospitalization, Other)
  Sender: AUROBINDO
  Company Number: GB-AUROBINDO-08-AUR-03016

PATIENT
  Age: 34 Year
  Sex: Male
  Weight: 58 kg

DRUGS (1)
  1. ACETAMINOPHEN [Suspect]
     Active Substance: ACETAMINOPHEN
     Indication: Product used for unknown indication
     Route: 048

REACTIONS (3)
  - Intentional overdose [Recovered/Resolved]
  - Acute hepatic failure [Recovered/Resolved]
  - Encephalopathy [Unknown]
